FAERS Safety Report 10664031 (Version 1)
Quarter: 2014Q4

REPORT INFORMATION
  Report Type: Spontaneous
  Country: FR (occurrence: FR)
  Receive Date: 20141219
  Receipt Date: 20141219
  Transmission Date: 20150529
  Serious: Yes (Other)
  Sender: FDA-Public Use
  Company Number: FR-CIPLA LTD.-2014FR02621

PATIENT

DRUGS (3)
  1. PACLITAXEL. [Suspect]
     Active Substance: PACLITAXEL
     Indication: NEOPLASM
     Dosage: 200 MG/M2
  2. OMBRABULIN [Suspect]
     Active Substance: OMBRABULIN
     Indication: NEOPLASM
     Dosage: 30 MIN INFUSION ON DAY 1 AND ESCALATED FROM 20 TO 35 MG/M2
     Route: 042
  3. CARBOPLATIN. [Suspect]
     Active Substance: CARBOPLATIN
     Indication: NEOPLASM
     Dosage: AUC 6

REACTIONS (1)
  - Peripheral ischaemia [Unknown]
